FAERS Safety Report 9753977 (Version 1)
Quarter: 2013Q4

REPORT INFORMATION
  Report Type: Spontaneous
  Country: US (occurrence: US)
  Receive Date: 20131213
  Receipt Date: 20131213
  Transmission Date: 20140711
  Serious: No
  Sender: FDA-Public Use
  Company Number: US-GLAXOSMITHKLINE-A1003137A

PATIENT
  Age: 72 Year
  Sex: Male

DRUGS (1)
  1. NICORETTE NICOTINE POLACRILEX MINT LOZENGE [Suspect]
     Indication: EX-TOBACCO USER
     Dates: start: 20121101

REACTIONS (4)
  - Dysphonia [Not Recovered/Not Resolved]
  - Product quality issue [Unknown]
  - Lip disorder [Recovered/Resolved]
  - Drug administration error [Unknown]
